FAERS Safety Report 10186391 (Version 1)
Quarter: 2014Q2

REPORT INFORMATION
  Report Type: Spontaneous
  Country: US (occurrence: US)
  Receive Date: 20140521
  Receipt Date: 20140521
  Transmission Date: 20141212
  Serious: No
  Sender: FDA-Public Use
  Company Number: US-ASTRAZENECA-2013SE83782

PATIENT
  Age: 60 Year
  Sex: Female
  Weight: 80.3 kg

DRUGS (7)
  1. PULMICORT FLEXHALER [Suspect]
     Indication: ASTHMA
     Dosage: 2 PUFFS BID
     Route: 055
     Dates: start: 20131105, end: 20131111
  2. LISINOPRIL [Suspect]
     Indication: HYPERTENSION
     Route: 048
     Dates: start: 2010
  3. OMEPRAZOLE [Suspect]
     Route: 048
     Dates: start: 2008
  4. MORPHINE [Suspect]
     Route: 065
  5. RUTUXIN [Concomitant]
     Indication: RHEUMATOID ARTHRITIS
     Route: 042
  6. ARAVA [Concomitant]
     Indication: RHEUMATOID ARTHRITIS
     Route: 048
     Dates: start: 2011
  7. CALCIUM [Concomitant]
     Route: 048
     Dates: start: 2010

REACTIONS (5)
  - Pruritus [Unknown]
  - Hypoaesthesia [Unknown]
  - Throat irritation [Unknown]
  - Cough [Unknown]
  - Drug dose omission [Unknown]
